FAERS Safety Report 12741595 (Version 1)
Quarter: 2016Q3

REPORT INFORMATION
  Report Type: Spontaneous
  Country: US (occurrence: US)
  Receive Date: 20160914
  Receipt Date: 20160914
  Transmission Date: 20161109
  Serious: No
  Sender: FDA-Public Use
  Company Number: US-SHIRE-US201610828

PATIENT
  Age: 9 Month
  Sex: Male

DRUGS (1)
  1. ELAPRASE [Suspect]
     Active Substance: IDURSULFASE
     Indication: MUCOPOLYSACCHARIDOSIS II
     Dosage: 1 VIAL PER INFUSION; 2MG/ML, UNK
     Route: 042
     Dates: start: 20160322

REACTIONS (3)
  - Rhinorrhoea [Unknown]
  - Drug administered to patient of inappropriate age [Not Recovered/Not Resolved]
  - Pyrexia [Unknown]

NARRATIVE: CASE EVENT DATE: 20160322
